FAERS Safety Report 5269958-5 (Version None)
Quarter: 2007Q1

REPORT INFORMATION
  Report Type: 
  Country: None (occurrence: None)
  Receive Date: 20070314
  Receipt Date: 20070306
  Transmission Date: 20070707
  Serious: Yes (Hospitalization)
  Sender: FDA-Public Use
  Company Number: 153699ISR

PATIENT
  Age: 63 Year
  Sex: Male

DRUGS (2)
  1. PERGOLIDE MESYLATE [Suspect]
     Indication: PARKINSON'S DISEASE
     Dosage: 6-8 MG DAILY DOSE
     Dates: start: 20000101
  2. SINEMET [Concomitant]

REACTIONS (2)
  - PATHOLOGICAL GAMBLING [None]
  - SUICIDE ATTEMPT [None]
